FAERS Safety Report 22028297 (Version 1)
Quarter: 2023Q1

REPORT INFORMATION
  Report Type: Spontaneous
  Country: US (occurrence: None)
  Receive Date: 20230216
  Receipt Date: 20230216
  Transmission Date: 20230418
  Serious: No
  Sender: FDA-Public Use
  Company Number: None

PATIENT
  Sex: Female

DRUGS (2)
  1. REMODULIN [Suspect]
     Active Substance: TREPROSTINIL
     Indication: Pulmonary arterial hypertension
     Dosage: OTHER QUANTITY : 60NG/KG/MIN;?
     Route: 058
     Dates: start: 202103
  2. DEVICE [Suspect]
     Active Substance: DEVICE

REACTIONS (3)
  - Nausea [None]
  - Device malfunction [None]
  - Device alarm issue [None]
